FAERS Safety Report 10869079 (Version 1)
Quarter: 2015Q1

REPORT INFORMATION
  Report Type: Spontaneous
  Country: US (occurrence: US)
  Receive Date: 20150225
  Receipt Date: 20150225
  Transmission Date: 20150721
  Serious: Yes (Death)
  Sender: FDA-Public Use
  Company Number: US-CELGENE-USA-2015014852

PATIENT
  Age: 73 Year
  Sex: Male

DRUGS (2)
  1. REVLIMID [Suspect]
     Active Substance: LENALIDOMIDE
     Route: 048
     Dates: start: 201502, end: 201502
  2. REVLIMID [Suspect]
     Active Substance: LENALIDOMIDE
     Indication: PLASMA CELL MYELOMA
     Route: 048
     Dates: start: 201412

REACTIONS (8)
  - Death [Fatal]
  - Bowel movement irregularity [Unknown]
  - Nasopharyngitis [Unknown]
  - Asthenia [Unknown]
  - Neuropathy peripheral [Unknown]
  - Pyrexia [Unknown]
  - Drug intolerance [Unknown]
  - Vomiting [Unknown]

NARRATIVE: CASE EVENT DATE: 20150211
